FAERS Safety Report 16431948 (Version 1)
Quarter: 2019Q2

REPORT INFORMATION
  Report Type: Spontaneous
  Country: FR (occurrence: FR)
  Receive Date: 20190614
  Receipt Date: 20190614
  Transmission Date: 20190711
  Serious: Yes (Other)
  Sender: FDA-Public Use
  Company Number: FR-AMREGENT-20191164

PATIENT
  Age: 21 Year
  Sex: Female
  Weight: 56 kg

DRUGS (1)
  1. FERINJECT [Suspect]
     Active Substance: FERRIC CARBOXYMALTOSE
     Dosage: 1 GM, 1 IN 15 D
     Route: 042
     Dates: start: 201904, end: 201904

REACTIONS (3)
  - Circulatory collapse [Unknown]
  - Rash maculo-papular [Unknown]
  - Pruritus [Unknown]

NARRATIVE: CASE EVENT DATE: 20190513
